FAERS Safety Report 4714076-5 (Version None)
Quarter: 2005Q3

REPORT INFORMATION
  Report Type: 
  Country: None (occurrence: None)
  Receive Date: 20050713
  Receipt Date: 20050713
  Transmission Date: 20060218
  Serious: Yes (Other)
  Sender: FDA-Public Use
  Company Number: None

PATIENT
  Age: 34 Year
  Sex: Female
  Weight: 120.2032 kg

DRUGS (1)
  1. PHENTERMINE [Suspect]
     Indication: OVERWEIGHT
     Dosage: 37.5 MG 1/DAY ORAL
     Route: 048
     Dates: start: 20010101, end: 20010601

REACTIONS (1)
  - THERAPEUTIC RESPONSE UNEXPECTED [None]
